FAERS Safety Report 17845984 (Version 1)
Quarter: 2020Q2

REPORT INFORMATION
  Report Type: Spontaneous
  Country: FR (occurrence: FR)
  Receive Date: 20200601
  Receipt Date: 20200601
  Transmission Date: 20200714
  Serious: Yes (Hospitalization)
  Sender: FDA-Public Use
  Company Number: FR-TEVA-2020-FR-1241475

PATIENT
  Age: 22 Year
  Sex: Male

DRUGS (1)
  1. TRAMADOL BASE [Suspect]
     Active Substance: TRAMADOL
     Indication: INTENTIONAL OVERDOSE
     Dosage: 2000 MG
     Route: 048
     Dates: start: 20200408, end: 20200408

REACTIONS (5)
  - Bradypnoea [Recovering/Resolving]
  - Somnolence [Recovered/Resolved]
  - Acidosis [Recovering/Resolving]
  - Poisoning deliberate [Recovered/Resolved]
  - Miosis [Recovered/Resolved]

NARRATIVE: CASE EVENT DATE: 20200408
